FAERS Safety Report 19086099 (Version 3)
Quarter: 2021Q2

REPORT INFORMATION
  Report Type: Spontaneous
  Country: BR (occurrence: BR)
  Receive Date: 20210402
  Receipt Date: 20210419
  Transmission Date: 20210717
  Serious: Yes (Other)
  Sender: FDA-Public Use
  Company Number: BR-PFIZER INC-2021344696

PATIENT
  Sex: Male

DRUGS (1)
  1. DESVENLAFAXINE SUCCINATE MONOHYDRATE [Suspect]
     Active Substance: DESVENLAFAXINE SUCCINATE
     Dosage: UNK

REACTIONS (7)
  - Tachycardia [Unknown]
  - Hypertension [Unknown]
  - Cardiac failure [Unknown]
  - Bradycardia [Unknown]
  - Agitation [Unknown]
  - Anxiety [Unknown]
  - Post-traumatic stress disorder [Unknown]
